FAERS Safety Report 10879750 (Version 1)
Quarter: 2015Q1

REPORT INFORMATION
  Report Type: Other
  Country: US (occurrence: US)
  Receive Date: 20150302
  Receipt Date: 20150302
  Transmission Date: 20150721
  Serious: Yes (Death, Other)
  Sender: FDA-Public Use
  Company Number: US-ACTELION-A-US2015-113759

PATIENT
  Sex: Female

DRUGS (1)
  1. VENTAVIS [Suspect]
     Active Substance: ILOPROST
     Indication: PERSISTENT FOETAL CIRCULATION
     Route: 055

REACTIONS (5)
  - Cerebral infarction [Unknown]
  - Respiratory failure [Fatal]
  - Drug ineffective [Unknown]
  - Bronchopulmonary dysplasia [Fatal]
  - Off label use [Unknown]
